FAERS Safety Report 22648030 (Version 1)
Quarter: 2023Q2

REPORT INFORMATION
  Report Type: Spontaneous
  Country: US (occurrence: US)
  Receive Date: 20230628
  Receipt Date: 20230628
  Transmission Date: 20230721
  Serious: No
  Sender: FDA-Public Use
  Company Number: US-AMGEN-USASP2023110888

PATIENT
  Sex: Male

DRUGS (2)
  1. REPATHA [Suspect]
     Active Substance: EVOLOCUMAB
     Indication: Hyperlipidaemia
     Dosage: 420 MILLIGRAM, QMO
     Route: 058
     Dates: start: 20211118
  2. REPATHA [Suspect]
     Active Substance: EVOLOCUMAB
     Dosage: UNK, UNK
     Route: 058

REACTIONS (2)
  - Device difficult to use [Unknown]
  - Product dose omission issue [Unknown]
